FAERS Safety Report 7488961-8 (Version None)
Quarter: 2011Q2

REPORT INFORMATION
  Report Type: 
  Country: None (occurrence: None)
  Receive Date: 20110518
  Receipt Date: 20110506
  Transmission Date: 20111010
  Serious: Yes (Hospitalization)
  Sender: FDA-Public Use
  Company Number: ES-UCBSA-032421

PATIENT
  Age: 55 Year
  Sex: Male

DRUGS (4)
  1. VENLAFAXINE [Concomitant]
     Indication: DEPRESSION
  2. BIOSOPROLOL [Concomitant]
     Indication: HYPERTENSION
  3. OMEPRAZOLE [Suspect]
     Indication: HIATUS HERNIA
  4. VALSARTAN [Concomitant]
     Indication: HYPERTENSION

REACTIONS (16)
  - TREMOR [None]
  - HYPOMAGNESAEMIA [None]
  - BLOOD PARATHYROID HORMONE DECREASED [None]
  - NAUSEA [None]
  - ABDOMINAL PAIN UPPER [None]
  - HYPOCALCAEMIA [None]
  - ELECTROCARDIOGRAM QT PROLONGED [None]
  - BLOOD GASTRIN INCREASED [None]
  - BLOOD CHROMOGRANIN A INCREASED [None]
  - PARAESTHESIA [None]
  - DIARRHOEA [None]
  - HYPOKALAEMIA [None]
  - BARRETT'S OESOPHAGUS [None]
  - VOMITING [None]
  - COLONIC POLYP [None]
  - MUSCLE SPASMS [None]
